FAERS Safety Report 5805037-3 (Version None)
Quarter: 2008Q3

REPORT INFORMATION
  Report Type: 
  Country: None (occurrence: None)
  Receive Date: 20080709
  Receipt Date: 20080703
  Transmission Date: 20090109
  Serious: Yes (Disabling, Other)
  Sender: FDA-Public Use
  Company Number: US-BOEHRINGER INGELHEIM GMBH, GERMANY-2008-DE-03856GD

PATIENT
  Sex: Female

DRUGS (5)
  1. PRAMIPEXOLE DIHYDROCHLORIDE [Suspect]
     Indication: PARKINSONISM
  2. AMANTADINE HCL [Suspect]
     Indication: PARKINSONISM
  3. CARBIDOPA AND LEVODOPA [Suspect]
     Indication: PARKINSONISM
  4. ENTACAPONE [Suspect]
     Indication: PARKINSONISM
  5. PAROXETINE HCL [Concomitant]
     Indication: DEPRESSED MOOD

REACTIONS (3)
  - CHOREA [None]
  - DRUG EFFECT DECREASED [None]
  - ON AND OFF PHENOMENON [None]
